FAERS Safety Report 16626971 (Version 2)
Quarter: 2020Q1

REPORT INFORMATION
  Report Type: Spontaneous
  Country: US (occurrence: US)
  Receive Date: 20190724
  Receipt Date: 20200206
  Transmission Date: 20200409
  Serious: No
  Sender: FDA-Public Use
  Company Number: US-SA-2019SA198379

PATIENT
  Age: 41 Year
  Sex: Male

DRUGS (1)
  1. ADMELOG [Suspect]
     Active Substance: INSULIN LISPRO
     Indication: TYPE 1 DIABETES MELLITUS
     Dosage: UNK UNK, TID
     Route: 065

REACTIONS (1)
  - Blood glucose increased [Recovered/Resolved]
